FAERS Safety Report 6073771-9 (Version None)
Quarter: 2009Q1

REPORT INFORMATION
  Report Type: 
  Country: None (occurrence: None)
  Receive Date: 20090204
  Receipt Date: 20090204
  Transmission Date: 20090719
  Serious: Yes (Hospitalization)
  Sender: FDA-Public Use
  Company Number: None

PATIENT
  Sex: Female
  Weight: 57.4 kg

DRUGS (1)
  1. ROTIGOTINE (ROTIGOTINE) [Suspect]
     Indication: RESTLESS LEGS SYNDROME
     Dosage: (4.5 MG QD  TRANSDERMAL)
     Route: 062
     Dates: start: 20081117, end: 20081211

REACTIONS (4)
  - ACCIDENT [None]
  - BACK INJURY [None]
  - FALL [None]
  - HAEMATOMA [None]
